FAERS Safety Report 18627396 (Version 4)
Quarter: 2021Q1

REPORT INFORMATION
  Report Type: Spontaneous
  Country: US (occurrence: US)
  Receive Date: 20201217
  Receipt Date: 20210303
  Transmission Date: 20210419
  Serious: Yes (Hospitalization, Other)
  Sender: FDA-Public Use
  Company Number: US-ABBVIE-20K-163-3693540-00

PATIENT
  Sex: Female

DRUGS (1)
  1. CREON [Suspect]
     Active Substance: PANCRELIPASE AMYLASE\PANCRELIPASE LIPASE\PANCRELIPASE PROTEASE
     Indication: PRODUCT USED FOR UNKNOWN INDICATION
     Route: 048

REACTIONS (12)
  - Lung disorder [Unknown]
  - Dysstasia [Unknown]
  - Allergy to vaccine [Unknown]
  - Anxiety [Unknown]
  - Autoimmune disorder [Unknown]
  - Asthenia [Unknown]
  - COVID-19 [Unknown]
  - Stress [Unknown]
  - General physical health deterioration [Unknown]
  - Pneumothorax [Unknown]
  - Fear [Unknown]
  - General physical condition abnormal [Unknown]

NARRATIVE: CASE EVENT DATE: 2020
